FAERS Safety Report 7722633-7 (Version None)
Quarter: 2011Q3

REPORT INFORMATION
  Report Type: 
  Country: None (occurrence: None)
  Receive Date: 20110831
  Receipt Date: 20110826
  Transmission Date: 20111222
  Serious: Yes (Hospitalization, Other)
  Sender: FDA-Public Use
  Company Number: US-MERCK-1106USA00883

PATIENT
  Age: 68 Year
  Sex: Female
  Weight: 62 kg

DRUGS (6)
  1. VITA C [Concomitant]
     Route: 048
     Dates: start: 19860101
  2. CENTRUM [Concomitant]
     Route: 048
     Dates: start: 19860101
  3. FOSAMAX [Suspect]
     Route: 048
     Dates: start: 20010324, end: 20050620
  4. OS-CAL [Concomitant]
     Route: 048
     Dates: start: 19990101
  5. FOSAMAX PLUS D [Suspect]
     Indication: OSTEOPOROSIS
     Route: 048
     Dates: start: 20050620, end: 20090714
  6. FOSAMAX [Suspect]
     Indication: OSTEOPOROSIS
     Route: 048
     Dates: start: 19990301, end: 20010324

REACTIONS (11)
  - FEMUR FRACTURE [None]
  - FAMILY STRESS [None]
  - VISUAL IMPAIRMENT [None]
  - VISUAL FIELD DEFECT [None]
  - FALL [None]
  - ARTHROSCOPY [None]
  - HYPERCHOLESTEROLAEMIA [None]
  - HYPERLIPIDAEMIA [None]
  - MIGRAINE WITH AURA [None]
  - SINUSITIS [None]
  - ANAEMIA [None]
